FAERS Safety Report 13929381 (Version 1)
Quarter: 2017Q3

REPORT INFORMATION
  Report Type: Other
  Country: DK (occurrence: DK)
  Receive Date: 20170901
  Receipt Date: 20170901
  Transmission Date: 20171127
  Serious: Yes (Hospitalization)
  Sender: FDA-Public Use
  Company Number: DK-CELLTRION HEALTHCARE HUNGARY KFT-2017DK011299

PATIENT

DRUGS (8)
  1. REMSIMA [Suspect]
     Active Substance: INFLIXIMAB
     Dosage: 400 MG, WEEKLY, 0, 2, 6, +6.
     Route: 042
  2. FOLIMET [Concomitant]
     Dosage: UNK
     Route: 048
     Dates: start: 20150317
  3. METHOTREXATE. [Concomitant]
     Active Substance: METHOTREXATE
     Dosage: UNK
     Route: 058
     Dates: start: 20150626
  4. REMSIMA [Suspect]
     Active Substance: INFLIXIMAB
     Indication: ARTHRITIS REACTIVE
     Dosage: 400 MG, WEEKLY, 0, 2, 6, +6.
     Route: 042
     Dates: start: 20170109, end: 20170109
  5. REMSIMA [Suspect]
     Active Substance: INFLIXIMAB
     Dosage: 400 MG, WEEKLY, 0, 2, 6, +6.
     Route: 042
  6. STEROIDS NOS [Concomitant]
     Active Substance: UNSPECIFIED INGREDIENT
     Dosage: PRIOR TO REMSIMA THE PATIENT RECEIVED TWO
     Dates: start: 20170807, end: 20170807
  7. REMSIMA [Suspect]
     Active Substance: INFLIXIMAB
     Dosage: 400 MG, WEEKLY, 0, 2, 6, +6.
     Route: 042
  8. REMSIMA [Suspect]
     Active Substance: INFLIXIMAB
     Dosage: 400 MG, WEEKLY, 0, 2, 6, +6.
     Route: 042
     Dates: start: 20170807, end: 20170807

REACTIONS (5)
  - Flushing [Recovered/Resolved]
  - Throat tightness [Recovered/Resolved]
  - Off label use [Unknown]
  - Malaise [Recovered/Resolved]
  - Hypersensitivity [Recovered/Resolved]

NARRATIVE: CASE EVENT DATE: 20170109
